FAERS Safety Report 15676172 (Version 2)
Quarter: 2018Q4

REPORT INFORMATION
  Report Type: Spontaneous
  Country: US (occurrence: US)
  Receive Date: 20181130
  Receipt Date: 20181231
  Transmission Date: 20190205
  Serious: Yes (Death)
  Sender: FDA-Public Use
  Company Number: US-B.I. PHARMACEUTICALS,INC./RIDGEFIELD-2018-BI-057878

PATIENT
  Sex: Male

DRUGS (1)
  1. COMBIVENT [Suspect]
     Active Substance: ALBUTEROL SULFATE\IPRATROPIUM BROMIDE
     Indication: PRODUCT USED FOR UNKNOWN INDICATION
     Dosage: FORM STRENGTH: 20 MCG/100 MCG;  ACTION(S) TAKEN WITH PRODUCT: NOT APPLICABLE
     Route: 055

REACTIONS (8)
  - Injury [Unknown]
  - Death [Fatal]
  - Panic reaction [Unknown]
  - Dyspnoea [Unknown]
  - Stress [Unknown]
  - Product quality issue [Unknown]
  - Helplessness [Unknown]
  - Anxiety [Unknown]

NARRATIVE: CASE EVENT DATE: 20180301
